FAERS Safety Report 9664536 (Version 1)
Quarter: 2013Q4

REPORT INFORMATION
  Report Type: Spontaneous
  Country: US (occurrence: None)
  Receive Date: 20131030
  Receipt Date: 20131030
  Transmission Date: 20140711
  Serious: Yes (Other)
  Sender: FDA-Public Use
  Company Number: None

PATIENT
  Age: 34 Year
  Sex: Female
  Weight: 90.72 kg

DRUGS (2)
  1. OXCABAZEPINE [Suspect]
     Indication: CONVULSION
     Dates: start: 2007
  2. OXCABAZEPINE [Suspect]
     Indication: EPILEPSY
     Dates: start: 2007

REACTIONS (1)
  - Convulsion [None]
